FAERS Safety Report 23831063 (Version 1)
Quarter: 2024Q2

REPORT INFORMATION
  Report Type: Spontaneous
  Country: NL (occurrence: NL)
  Receive Date: 20240508
  Receipt Date: 20240508
  Transmission Date: 20240716
  Serious: Yes (Death, Life-Threatening)
  Sender: FDA-Public Use
  Company Number: None

PATIENT
  Age: 59 Year
  Sex: Male
  Weight: 70 kg

DRUGS (1)
  1. SUTENT [Suspect]
     Active Substance: SUNITINIB MALATE
     Indication: Renal cancer metastatic
     Dosage: UNK
     Dates: start: 20210912, end: 20230322

REACTIONS (4)
  - Pancreatitis [Fatal]
  - Second primary malignancy [Fatal]
  - Pancreatic carcinoma [Fatal]
  - Deep vein thrombosis [Fatal]
